FAERS Safety Report 4825800-5 (Version None)
Quarter: 2005Q4

REPORT INFORMATION
  Report Type: 
  Country: None (occurrence: None)
  Receive Date: 20051111
  Receipt Date: 20051104
  Transmission Date: 20060501
  Serious: Yes (Hospitalization)
  Sender: FDA-Public Use
  Company Number: AT-GLAXOSMITHKLINE-B0399722A

PATIENT
  Age: 62 Year
  Sex: Female

DRUGS (13)
  1. VALTREX [Suspect]
     Indication: HERPES SIMPLEX
     Dosage: 1G THREE TIMES PER DAY
     Route: 048
     Dates: start: 20050921, end: 20050922
  2. EVISTA [Concomitant]
     Indication: OSTEOPOROSIS
     Dosage: 60MG FOUR TIMES PER DAY
     Route: 048
  3. CAL-D-VITA (SWEDEN) [Concomitant]
     Indication: OSTEOPOROSIS
  4. NEURONTIN [Concomitant]
     Dosage: 300MG FOUR TIMES PER DAY
     Route: 048
  5. TRITTICO [Concomitant]
     Indication: DEPRESSION
     Dosage: 100MG FOUR TIMES PER DAY
     Route: 048
  6. DEQUONAL [Concomitant]
     Indication: ORAL INFECTION
     Dosage: 50MG FOUR TIMES PER DAY
     Route: 048
  7. ZOVIRAX [Concomitant]
     Indication: HERPES SIMPLEX
     Dates: start: 20050921, end: 20050922
  8. MELPHALAN [Concomitant]
     Indication: MULTIPLE MYELOMA
     Route: 065
  9. HYDROXYPROPYL METHYLCELLULOSE [Concomitant]
     Route: 047
  10. SIRDALUD [Concomitant]
     Dosage: 6MG FOUR TIMES PER DAY
     Route: 048
  11. TRIAZOLAM [Concomitant]
     Dosage: .25MG FOUR TIMES PER DAY
     Route: 048
  12. UROSIN [Concomitant]
     Indication: GOUT
     Dosage: 100MG FOUR TIMES PER DAY
     Route: 065
  13. PANTOPRAZOLE SODIUM [Concomitant]
     Indication: PROPHYLAXIS
     Dosage: 40MG FOUR TIMES PER DAY
     Route: 048

REACTIONS (5)
  - DRUG ERUPTION [None]
  - PAIN [None]
  - PRURITUS [None]
  - PYREXIA [None]
  - RASH GENERALISED [None]
